FAERS Safety Report 11742851 (Version 3)
Quarter: 2016Q1

REPORT INFORMATION
  Report Type: Spontaneous
  Country: US (occurrence: US)
  Receive Date: 20151116
  Receipt Date: 20160114
  Transmission Date: 20160525
  Serious: Yes (Other)
  Sender: FDA-Public Use
  Company Number: US-AMGEN-USASP2015120102

PATIENT
  Age: 65 Year
  Sex: Male

DRUGS (1)
  1. EPOGEN [Suspect]
     Active Substance: ERYTHROPOIETIN
     Indication: NEPHROGENIC ANAEMIA
     Dosage: UNK
     Route: 065
     Dates: end: 20151001

REACTIONS (4)
  - Anaemia [Not Recovered/Not Resolved]
  - Anti-erythropoietin antibody positive [Unknown]
  - Drug effect decreased [Unknown]
  - Aplasia pure red cell [Unknown]

NARRATIVE: CASE EVENT DATE: 201509
